FAERS Safety Report 6987332-8 (Version None)
Quarter: 2010Q3

REPORT INFORMATION
  Report Type: 
  Country: None (occurrence: None)
  Receive Date: 20100827
  Receipt Date: 20100601
  Transmission Date: 20110219
  Serious: No
  Sender: FDA-Public Use
  Company Number: 012926

PATIENT
  Sex: Male

DRUGS (8)
  1. LACOSAMIDE [Suspect]
     Indication: CONVULSION
     Dosage: 10 MG QD; 150 MG, 1 TAB BID AND 3 AT BEDTIME ORAL
     Route: 048
     Dates: start: 20100401
  2. LACOSAMIDE [Suspect]
     Indication: CONVULSION
     Dosage: 10 MG QD; 150 MG, 1 TAB BID AND 3 AT BEDTIME ORAL
     Route: 048
     Dates: start: 20100420
  3. OMEPRAZOLE [Concomitant]
  4. TEGRETOL [Concomitant]
  5. CITALOPRAM HYDROBROMIDE [Concomitant]
  6. METOCLOPRAMIDE [Concomitant]
  7. METOPROLOL TARTRATE [Concomitant]
  8. DILANTIN [Concomitant]

REACTIONS (1)
  - ALOPECIA [None]
